FAERS Safety Report 15730310 (Version 1)
Quarter: 2018Q4

REPORT INFORMATION
  Report Type: Spontaneous
  Country: US (occurrence: US)
  Receive Date: 20181202
  Receipt Date: 20181202
  Transmission Date: 20190205
  Serious: No
  Sender: FDA-Public Use
  Company Number: None

PATIENT
  Age: 20 Year
  Sex: Female
  Weight: 59.85 kg

DRUGS (3)
  1. CIPROFLOXACIN. [Suspect]
     Active Substance: CIPROFLOXACIN
  2. METHYLPREDNISONE [Concomitant]
     Active Substance: METHYLPREDNISOLONE
  3. METHYLPREDNISOLONE. [Suspect]
     Active Substance: METHYLPREDNISOLONE
     Indication: HYPERSENSITIVITY
     Dosage: ?          QUANTITY:1 TABLET(S);?
     Route: 048
     Dates: start: 20181201, end: 20181202

REACTIONS (4)
  - Muscle twitching [None]
  - Rash papular [None]
  - Adverse drug reaction [None]
  - Hypoaesthesia [None]

NARRATIVE: CASE EVENT DATE: 20181127
